FAERS Safety Report 22371213 (Version 2)
Quarter: 2023Q4

REPORT INFORMATION
  Report Type: Spontaneous
  Country: US (occurrence: US)
  Receive Date: 20230526
  Receipt Date: 20231208
  Transmission Date: 20240109
  Serious: No
  Sender: FDA-Public Use
  Company Number: US-SA-SAC20230525001398

PATIENT
  Sex: Female

DRUGS (1)
  1. DUPIXENT [Suspect]
     Active Substance: DUPILUMAB
     Indication: Dermatitis atopic
     Dosage: 300 MG, QOW, THERAPY: OVER A YEAR
     Route: 058

REACTIONS (4)
  - Nasopharyngitis [Unknown]
  - Eye pruritus [Unknown]
  - Rash [Unknown]
  - Drug ineffective [Unknown]
